FAERS Safety Report 5427269-9 (Version None)
Quarter: 2007Q3

REPORT INFORMATION
  Report Type: 
  Country: None (occurrence: None)
  Receive Date: 20070828
  Receipt Date: 20070817
  Transmission Date: 20080115
  Serious: Yes (Other)
  Sender: FDA-Public Use
  Company Number: DE-NOVOPROD-260771

PATIENT
  Sex: Female
  Weight: 57 kg

DRUGS (3)
  1. LEVEMIR [Suspect]
     Indication: TYPE 1 DIABETES MELLITUS
     Dosage: 34 U, QD
     Route: 058
     Dates: start: 20050214, end: 20070215
  2. PROTAPHANE [Concomitant]
     Dosage: UNK IU, QD
     Route: 058
     Dates: start: 20070209
  3. ACTRAPID [Concomitant]
     Dosage: UNK IU, QD
     Route: 058

REACTIONS (2)
  - ABORTION SPONTANEOUS [None]
  - PREGNANCY [None]
